FAERS Safety Report 13918894 (Version 6)
Quarter: 2018Q3

REPORT INFORMATION
  Report Type: Spontaneous
  Country: JP (occurrence: JP)
  Receive Date: 20170830
  Receipt Date: 20180711
  Transmission Date: 20181010
  Serious: Yes (Hospitalization, Other)
  Sender: FDA-Public Use
  Company Number: JP-AMGEN-JPNSP2017131436

PATIENT
  Age: 72 Year
  Sex: Female

DRUGS (51)
  1. G?LASTA [Suspect]
     Active Substance: PEGFILGRASTIM
     Dosage: 3.6 MG, UNK
     Route: 058
     Dates: start: 20160223, end: 20160223
  2. ENDOXAN                            /00021102/ [Concomitant]
     Active Substance: CYCLOPHOSPHAMIDE
     Dosage: 770 MG, UNK
     Route: 041
     Dates: start: 20151008, end: 20151008
  3. G?LASTA [Suspect]
     Active Substance: PEGFILGRASTIM
     Dosage: 3.6 MG, UNK
     Route: 058
     Dates: start: 20160112, end: 20160112
  4. RITUXAN [Concomitant]
     Active Substance: RITUXIMAB
     Dosage: 600 MG, UNK
     Route: 041
     Dates: start: 20160218, end: 20160218
  5. ONCOVIN [Concomitant]
     Active Substance: VINCRISTINE SULFATE
     Dosage: 1.4 MG, UNK
     Route: 041
     Dates: start: 20160218, end: 20160218
  6. PREDONINE                          /00016203/ [Concomitant]
     Active Substance: PREDNISOLONE SODIUM SUCCINATE
     Dosage: 60 MG, UNK
     Route: 048
     Dates: start: 20160107, end: 20160107
  7. SEISHOKU [Concomitant]
     Active Substance: SODIUM CHLORIDE
     Dosage: 100 ML, BID
     Route: 041
     Dates: start: 20170525, end: 20170525
  8. GRAN [Suspect]
     Active Substance: FILGRASTIM
     Dosage: 75 MUG, UNK
     Route: 058
     Dates: start: 20160906, end: 20170202
  9. RITUXAN [Concomitant]
     Active Substance: RITUXIMAB
     Dosage: 600 MG, UNK
     Route: 041
     Dates: start: 20151119, end: 20151119
  10. DOXORUBICIN HYDROCHLORIDE. [Concomitant]
     Active Substance: DOXORUBICIN HYDROCHLORIDE
     Dosage: 50 MG, UNK
     Route: 041
     Dates: start: 20151210, end: 20151210
  11. DOXORUBICIN HYDROCHLORIDE. [Concomitant]
     Active Substance: DOXORUBICIN HYDROCHLORIDE
     Dosage: 25 MG, UNK
     Route: 041
     Dates: start: 20160107, end: 20160107
  12. ONCOVIN [Concomitant]
     Active Substance: VINCRISTINE SULFATE
     Dosage: 0.7 MG, UNK
     Route: 041
     Dates: start: 20160107, end: 20160107
  13. PREDONINE                          /00016203/ [Concomitant]
     Active Substance: PREDNISOLONE SODIUM SUCCINATE
     Dosage: 60 MG, UNK
     Route: 048
     Dates: start: 20151008, end: 20151012
  14. PREDONINE                          /00016203/ [Concomitant]
     Active Substance: PREDNISOLONE SODIUM SUCCINATE
     Dosage: 60 MG, UNK
     Route: 048
     Dates: start: 20160218, end: 20160218
  15. GRAN [Suspect]
     Active Substance: FILGRASTIM
     Dosage: 75 MUG, UNK
     Route: 058
     Dates: start: 20151109, end: 20151111
  16. GRAN [Suspect]
     Active Substance: FILGRASTIM
     Dosage: 75 MUG, UNK
     Route: 058
     Dates: start: 20151202, end: 20151202
  17. ENDOXAN                            /00021102/ [Concomitant]
     Active Substance: CYCLOPHOSPHAMIDE
     Dosage: 750 MG, UNK
     Route: 041
     Dates: start: 20160128, end: 20160128
  18. DOXORUBICIN HYDROCHLORIDE. [Concomitant]
     Active Substance: DOXORUBICIN HYDROCHLORIDE
     Dosage: 50 MG, UNK
     Route: 041
     Dates: start: 20160218, end: 20160218
  19. PREDONINE                          /00016203/ [Concomitant]
     Active Substance: PREDNISOLONE SODIUM SUCCINATE
     Dosage: 60 MG, UNK
     Route: 048
     Dates: start: 20151120, end: 20151120
  20. HUMULIN R [Concomitant]
     Active Substance: INSULIN HUMAN
     Dosage: 1 IU, QID
     Route: 058
     Dates: start: 20170525, end: 20170607
  21. G?LASTA [Suspect]
     Active Substance: PEGFILGRASTIM
     Dosage: 3.6 MG, UNK
     Route: 058
     Dates: start: 20160202, end: 20160202
  22. RITUXAN [Concomitant]
     Active Substance: RITUXIMAB
     Dosage: 600 MG, UNK
     Route: 041
     Dates: start: 20160107, end: 20160107
  23. ENDOXAN                            /00021102/ [Concomitant]
     Active Substance: CYCLOPHOSPHAMIDE
     Dosage: 750 MG, UNK
     Route: 041
     Dates: start: 20160107, end: 20160107
  24. DOXORUBICIN HYDROCHLORIDE. [Concomitant]
     Active Substance: DOXORUBICIN HYDROCHLORIDE
     Dosage: 50 MG, UNK
     Route: 041
     Dates: start: 20151029, end: 20151029
  25. DOXORUBICIN HYDROCHLORIDE. [Concomitant]
     Active Substance: DOXORUBICIN HYDROCHLORIDE
     Dosage: 50 MG, UNK
     Route: 041
     Dates: start: 20151120, end: 20151120
  26. ONCOVIN [Concomitant]
     Active Substance: VINCRISTINE SULFATE
     Dosage: 1.4 MG, UNK
     Route: 041
     Dates: start: 20151210, end: 20151210
  27. ONCOVIN [Concomitant]
     Active Substance: VINCRISTINE SULFATE
     Dosage: 0.7 MG, UNK
     Route: 041
     Dates: start: 20160128, end: 20160128
  28. PREDONINE                          /00016203/ [Concomitant]
     Active Substance: PREDNISOLONE SODIUM SUCCINATE
     Dosage: 60 MG, UNK
     Route: 048
     Dates: start: 20151029, end: 20151102
  29. PREDONINE                          /00016203/ [Concomitant]
     Active Substance: PREDNISOLONE SODIUM SUCCINATE
     Dosage: 60 MG, UNK
     Route: 048
     Dates: start: 20151210, end: 20151210
  30. CEFAZOLIN NA [Concomitant]
     Active Substance: CEFAZOLIN SODIUM
     Dosage: 1 G, QD
     Route: 041
     Dates: start: 20170607, end: 20170607
  31. SEISHOKU [Concomitant]
     Active Substance: SODIUM CHLORIDE
     Dosage: 100 ML, UNK
     Route: 041
     Dates: start: 20170526, end: 20170605
  32. GRAN [Suspect]
     Active Substance: FILGRASTIM
     Dosage: 75 MUG, UNK
     Route: 058
     Dates: start: 20151119, end: 20151119
  33. G?LASTA [Suspect]
     Active Substance: PEGFILGRASTIM
     Indication: PRODUCT USED FOR UNKNOWN INDICATION
     Dosage: 3.6 MG, UNK
     Route: 058
     Dates: start: 20151215, end: 20151215
  34. RITUXAN [Concomitant]
     Active Substance: RITUXIMAB
     Dosage: 600 MG, UNK
     Route: 041
     Dates: start: 20151104, end: 20151104
  35. RITUXAN [Concomitant]
     Active Substance: RITUXIMAB
     Dosage: 600 MG, UNK
     Route: 041
     Dates: start: 20160128, end: 20160128
  36. ENDOXAN                            /00021102/ [Concomitant]
     Active Substance: CYCLOPHOSPHAMIDE
     Dosage: 750 MG, UNK
     Route: 041
     Dates: start: 20160218, end: 20160218
  37. DOXORUBICIN HYDROCHLORIDE. [Concomitant]
     Active Substance: DOXORUBICIN HYDROCHLORIDE
     Dosage: 25 MG, UNK
     Route: 041
     Dates: start: 20160128, end: 20160128
  38. ONCOVIN [Concomitant]
     Active Substance: VINCRISTINE SULFATE
     Dosage: 1.4 MG, UNK
     Route: 041
     Dates: start: 20151008, end: 20151008
  39. ONCOVIN [Concomitant]
     Active Substance: VINCRISTINE SULFATE
     Dosage: 1.4 MG, UNK
     Route: 041
     Dates: start: 20151029, end: 20151029
  40. ONCOVIN [Concomitant]
     Active Substance: VINCRISTINE SULFATE
     Dosage: 1.4 MG, UNK
     Route: 041
     Dates: start: 20151120, end: 20151120
  41. PREDONINE                          /00016203/ [Concomitant]
     Active Substance: PREDNISOLONE SODIUM SUCCINATE
     Dosage: 60 MG, UNK
     Route: 048
     Dates: start: 20160128, end: 20160128
  42. CEFAZOLIN NA [Concomitant]
     Active Substance: CEFAZOLIN SODIUM
     Dosage: 1 G, QD
     Route: 041
     Dates: start: 20170610, end: 20170610
  43. SEISHOKU [Concomitant]
     Active Substance: SODIUM CHLORIDE
     Dosage: 100 ML, TID
     Route: 041
     Dates: start: 20170606, end: 20170606
  44. RITUXAN [Concomitant]
     Active Substance: RITUXIMAB
     Dosage: 600 MG, UNK
     Route: 041
     Dates: start: 20151210, end: 20151210
  45. ENDOXAN                            /00021102/ [Concomitant]
     Active Substance: CYCLOPHOSPHAMIDE
     Dosage: 750 MG, UNK
     Route: 041
     Dates: start: 20151029, end: 20151029
  46. ENDOXAN                            /00021102/ [Concomitant]
     Active Substance: CYCLOPHOSPHAMIDE
     Dosage: 750 MG, UNK
     Route: 041
     Dates: start: 20151210, end: 20151210
  47. CEFAZOLIN NA [Concomitant]
     Active Substance: CEFAZOLIN SODIUM
     Dosage: 1 G, TID
     Route: 041
     Dates: start: 20170608, end: 20170609
  48. GRAN [Suspect]
     Active Substance: FILGRASTIM
     Indication: NEUTROPENIA
     Dosage: 75 MUG, UNK
     Route: 058
     Dates: start: 20151106, end: 20151107
  49. G?LASTA [Suspect]
     Active Substance: PEGFILGRASTIM
     Dosage: 3.6 MG, 1X/MONTH
     Route: 058
     Dates: start: 20161025, end: 20161025
  50. ENDOXAN                            /00021102/ [Concomitant]
     Active Substance: CYCLOPHOSPHAMIDE
     Dosage: 750 MG, UNK
     Route: 041
     Dates: start: 20151120, end: 20151120
  51. SEISHOKU [Concomitant]
     Active Substance: SODIUM CHLORIDE
     Dosage: 100 ML, BID
     Route: 041
     Dates: start: 20170607, end: 20170607

REACTIONS (1)
  - Aortitis [Recovering/Resolving]

NARRATIVE: CASE EVENT DATE: 201705
